FAERS Safety Report 8773740 (Version 3)
Quarter: 2012Q4

REPORT INFORMATION
  Report Type: 
  Country: JP (occurrence: JP)
  Receive Date: 20120907
  Receipt Date: 20120920
  Transmission Date: 20130627
  Serious: Yes (Hospitalization)
  Sender: FDA-Public Use
  Company Number: JP-PFIZER INC-2012217507

PATIENT
  Age: 44 Year
  Sex: Female
  Weight: 50.3 kg

DRUGS (6)
  1. CELECOX [Suspect]
     Indication: ARTHRALGIA
     Dosage: 100 mg, 2x/day
     Route: 048
     Dates: start: 20120726, end: 20120728
  2. TAKEPRON [Suspect]
     Indication: PROPHYLAXIS
     Dosage: 15 mg, 1x/day
     Route: 048
     Dates: start: 20120726, end: 20120728
  3. CALONAL [Suspect]
     Indication: ARTHRALGIA
     Dosage: 400 mg, 3x/day
     Route: 048
     Dates: start: 20120728, end: 20120807
  4. SELBEX [Suspect]
     Indication: PROPHYLAXIS
     Dosage: UNK
     Route: 048
     Dates: start: 20120726, end: 20120728
  5. MUCOSTA [Suspect]
     Indication: PROPHYLAXIS
     Dosage: 100 mg, 3x/day
     Route: 048
     Dates: start: 20120728, end: 20120807
  6. MIYA-BM [Concomitant]
     Dosage: UNK
     Route: 048
     Dates: start: 20120730

REACTIONS (1)
  - Hyperuricaemia [Not Recovered/Not Resolved]
